FAERS Safety Report 6460383-8 (Version None)
Quarter: 2009Q4

REPORT INFORMATION
  Report Type: 
  Country: None (occurrence: None)
  Receive Date: 20091130
  Receipt Date: 20091123
  Transmission Date: 20100525
  Serious: Yes (Hospitalization)
  Sender: FDA-Public Use
  Company Number: TR-ROXANE LABORATORIES, INC.-2009-RO-01191RO

PATIENT
  Age: 31 Year
  Sex: Male

DRUGS (4)
  1. DEXAMETHASONE TAB [Suspect]
     Indication: TENDONITIS
  2. POVIDONE IODINE [Suspect]
     Indication: INFECTION PROPHYLAXIS
  3. ALCOHOL [Suspect]
     Indication: INFECTION PROPHYLAXIS
  4. CEFAZOLIN [Concomitant]
     Indication: STAPHYLOCOCCAL ABSCESS
     Dosage: 4 G
     Route: 042

REACTIONS (2)
  - ABSCESS [None]
  - STAPHYLOCOCCAL ABSCESS [None]
